FAERS Safety Report 24753220 (Version 1)
Quarter: 2024Q4

REPORT INFORMATION
  Report Type: Spontaneous
  Country: US (occurrence: US)
  Receive Date: 20241219
  Receipt Date: 20241219
  Transmission Date: 20250115
  Serious: No
  Sender: PACIRA
  Company Number: US-ORG100016242-2024000071

PATIENT

DRUGS (2)
  1. EXPAREL [Suspect]
     Active Substance: BUPIVACAINE
     Indication: Product used for unknown indication
     Dosage: 133 MG EXPAREL ALONG WITH 75 MG PLAIN BUPIVACAINE 2:1 RATIO
     Route: 065
  2. BUPIVACAINE [Suspect]
     Active Substance: BUPIVACAINE
     Indication: Product used for unknown indication
     Dosage: 75 MG PLAIN BUPIVACAINE ALONG WITH 133 MG EXPAREL  1:2 RATIO
     Route: 065

REACTIONS (1)
  - Therapeutic response shortened [Unknown]
